FAERS Safety Report 25878055 (Version 2)
Quarter: 2025Q4

REPORT INFORMATION
  Report Type: Spontaneous
  Country: US (occurrence: US)
  Receive Date: 20251003
  Receipt Date: 20251028
  Transmission Date: 20260117
  Serious: No
  Sender: CIPLA
  Company Number: US-CIPLA LTD.-2025US11973

PATIENT

DRUGS (3)
  1. ALBUTEROL [Suspect]
     Active Substance: ALBUTEROL
     Indication: Product used for unknown indication
     Dosage: 2 TO 4 PUFFS BY MOUTH EVERY 4 TO 6 HOURS (REGULAR USER)
  2. ALBUTEROL [Suspect]
     Active Substance: ALBUTEROL
     Dosage: 2 TO 4 PUFFS BY MOUTH EVERY 4 TO 6 HOURS, ONLY USED 2 PUFFS (180 MCG)
     Dates: start: 202509
  3. ALBUTEROL [Suspect]
     Active Substance: ALBUTEROL
     Dosage: 2 TO 4 PUFFS BY MOUTH EVERY 4 TO 6 HOURS, ONLY USED 2 PUFFS (180 MCG) (NEW INHALER)
     Dates: start: 2025

REACTIONS (4)
  - Drug dose omission by device [Unknown]
  - Device delivery system issue [Unknown]
  - Product quality issue [Unknown]
  - Device malfunction [Unknown]

NARRATIVE: CASE EVENT DATE: 20250915
